FAERS Safety Report 24351192 (Version 1)
Quarter: 2024Q3

REPORT INFORMATION
  Report Type: Report from Study
  Country: EG (occurrence: EG)
  Receive Date: 20240923
  Receipt Date: 20240923
  Transmission Date: 20241016
  Serious: No
  Sender: ROCHE
  Company Number: EG-ROCHE-2957164

PATIENT
  Age: 35 Year
  Sex: Female

DRUGS (8)
  1. HERCEPTIN [Suspect]
     Active Substance: TRASTUZUMAB
     Indication: Breast cancer metastatic
     Route: 041
     Dates: start: 20210117, end: 20210704
  2. CYTOXAN [Suspect]
     Active Substance: CYCLOPHOSPHAMIDE
     Indication: Breast cancer metastatic
     Route: 042
     Dates: start: 20201214, end: 20210117
  3. ELLENCE [Suspect]
     Active Substance: EPIRUBICIN HYDROCHLORIDE
     Indication: Breast cancer metastatic
     Route: 042
     Dates: start: 20201214, end: 20210117
  4. PLATINOL [Suspect]
     Active Substance: CISPLATIN
     Indication: Breast cancer metastatic
     Dosage: DAY1,2,3 OF 21 DAY CYCLE? FREQUENCY TEXT:OTHER
     Route: 042
     Dates: start: 20210711
  5. TAXOTERE [Suspect]
     Active Substance: DOCETAXEL
     Indication: Breast cancer metastatic
     Route: 042
     Dates: start: 20210117, end: 20210704
  6. GEMZAR [Suspect]
     Active Substance: GEMCITABINE HYDROCHLORIDE
     Indication: Breast cancer metastatic
     Dosage: DAY 1,7 OF 21 DAY CYCLE? FREQUENCY TEXT:OTHER
     Route: 042
     Dates: start: 20210711
  7. HEPAFORT [Concomitant]
     Indication: Liver function test increased
     Route: 048
     Dates: start: 20210707
  8. URSODIOL [Concomitant]
     Active Substance: URSODIOL
     Indication: Liver function test increased
     Route: 048
     Dates: start: 20210707

REACTIONS (1)
  - Breast pain [Recovered/Resolved]

NARRATIVE: CASE EVENT DATE: 20210704
